FAERS Safety Report 15506568 (Version 1)
Quarter: 2018Q4

REPORT INFORMATION
  Report Type: Report from Study
  Country: DE (occurrence: DE)
  Receive Date: 20181016
  Receipt Date: 20181016
  Transmission Date: 20190205
  Serious: Yes (Other)
  Sender: FDA-Public Use
  Company Number: DE-ROCHE-2200479

PATIENT
  Sex: Female

DRUGS (14)
  1. RANIBIZUMAB. [Suspect]
     Active Substance: RANIBIZUMAB
     Dosage: 0.5 MG, UNK
     Route: 031
     Dates: start: 20170123
  2. RANIBIZUMAB. [Suspect]
     Active Substance: RANIBIZUMAB
     Dosage: 0.5 MG, UNK
     Route: 031
     Dates: start: 20170713
  3. RANIBIZUMAB. [Suspect]
     Active Substance: RANIBIZUMAB
     Dosage: 0.5 MG, UNK
     Route: 031
     Dates: start: 20170220
  4. RANIBIZUMAB. [Suspect]
     Active Substance: RANIBIZUMAB
     Dosage: 0.5 MG, UNK
     Route: 031
     Dates: start: 20171102
  5. RANIBIZUMAB. [Suspect]
     Active Substance: RANIBIZUMAB
     Dosage: 0.5 MG, UNK
     Route: 031
     Dates: start: 20171214
  6. RANIBIZUMAB. [Suspect]
     Active Substance: RANIBIZUMAB
     Indication: RETINAL VEIN OCCLUSION
     Dosage: 0.5 MG, UNK
     Route: 031
     Dates: start: 20161130
  7. RANIBIZUMAB. [Suspect]
     Active Substance: RANIBIZUMAB
     Dosage: 0.5 MG, UNK
     Route: 031
     Dates: start: 20170612
  8. RANIBIZUMAB. [Suspect]
     Active Substance: RANIBIZUMAB
     Dosage: 0.5 MG, UNK
     Route: 031
     Dates: start: 20170907
  9. RANIBIZUMAB. [Suspect]
     Active Substance: RANIBIZUMAB
     Dosage: 0.5 MG, UNK
     Route: 031
     Dates: start: 20170320
  10. RANIBIZUMAB. [Suspect]
     Active Substance: RANIBIZUMAB
     Indication: MACULAR OEDEMA
     Dosage: 0.5 MG, UNK
     Route: 031
     Dates: start: 20161102
  11. RANIBIZUMAB. [Suspect]
     Active Substance: RANIBIZUMAB
     Dosage: 0.5 MG, UNK
     Route: 031
     Dates: start: 20170810
  12. RANIBIZUMAB. [Suspect]
     Active Substance: RANIBIZUMAB
     Indication: VISUAL IMPAIRMENT
     Dosage: 0.5 MG, UNK
     Route: 031
     Dates: start: 20161004
  13. RANIBIZUMAB. [Suspect]
     Active Substance: RANIBIZUMAB
     Dosage: 0.5 MG, UNK
     Route: 031
     Dates: start: 20170511
  14. RANIBIZUMAB. [Suspect]
     Active Substance: RANIBIZUMAB
     Dosage: 0.5 MG, UNK
     Route: 031
     Dates: start: 20171005

REACTIONS (1)
  - Subretinal fluid [Not Recovered/Not Resolved]

NARRATIVE: CASE EVENT DATE: 20171214
